FAERS Safety Report 5748324-X (Version None)
Quarter: 2008Q2

REPORT INFORMATION
  Report Type: 
  Country: None (occurrence: None)
  Receive Date: 20080523
  Receipt Date: 20080514
  Transmission Date: 20081010
  Serious: Yes (Other)
  Sender: FDA-Public Use
  Company Number: FR-PFIZER INC-2008020204

PATIENT
  Sex: Female
  Weight: 57 kg

DRUGS (1)
  1. NEURONTIN [Suspect]
     Dates: start: 20080201, end: 20080303

REACTIONS (5)
  - DERMATITIS ALLERGIC [None]
  - ERYTHEMA [None]
  - INSOMNIA [None]
  - PRURITUS [None]
  - RASH [None]
